FAERS Safety Report 8305166-9 (Version None)
Quarter: 2012Q2

REPORT INFORMATION
  Report Type: 
  Country: None (occurrence: None)
  Receive Date: 20120405
  Receipt Date: 20120323
  Transmission Date: 20120825
  Serious: Yes (Life-Threatening, Hospitalization, Other)
  Sender: FDA-Public Use
  Company Number: 2011029448

PATIENT
  Sex: Female
  Weight: 95.2554 kg

DRUGS (8)
  1. BENADRYL [Concomitant]
  2. ACETAMINOPHEN [Concomitant]
  3. ZYRTEC [Concomitant]
  4. PEPCID [Concomitant]
  5. VITAMIN D [Concomitant]
  6. SUDAFED 12 HOUR [Concomitant]
  7. BERINERT [Suspect]
     Indication: HEREDITARY ANGIOEDEMA
     Dosage: SEE IMAGE
     Route: 042
     Dates: start: 20110712, end: 20110712
  8. BERINERT [Suspect]
     Indication: HEREDITARY ANGIOEDEMA
     Dosage: SEE IMAGE
     Route: 042
     Dates: start: 20110630, end: 20110712

REACTIONS (17)
  - DEEP VEIN THROMBOSIS [None]
  - MUNCHAUSEN'S SYNDROME [None]
  - LIVER DISORDER [None]
  - ASPARTATE AMINOTRANSFERASE INCREASED [None]
  - ANAEMIA [None]
  - ANGIOEDEMA [None]
  - ABDOMINAL PAIN [None]
  - SPHINCTER OF ODDI DYSFUNCTION [None]
  - APNOEA [None]
  - REFUSAL OF TREATMENT BY PATIENT [None]
  - PELVIC FLUID COLLECTION [None]
  - BLOOD ALKALINE PHOSPHATASE INCREASED [None]
  - COMPUTERISED TOMOGRAM ABDOMEN ABNORMAL [None]
  - ALANINE AMINOTRANSFERASE INCREASED [None]
  - RESPIRATORY ARREST [None]
  - MEDICAL DEVICE COMPLICATION [None]
  - ASCITES [None]
